FAERS Safety Report 4465785-7 (Version None)
Quarter: 2004Q4

REPORT INFORMATION
  Report Type: 
  Country: None (occurrence: None)
  Receive Date: 20041005
  Receipt Date: 20040927
  Transmission Date: 20050328
  Serious: Yes (Life-Threatening, Hospitalization)
  Sender: FDA-Public Use
  Company Number: JP-JNJFOC-20031203942

PATIENT
  Sex: Female
  Weight: 12 kg

DRUGS (14)
  1. REMICADE [Suspect]
     Route: 041
     Dates: start: 20031201
  2. REMICADE [Suspect]
     Route: 041
     Dates: start: 20031201
  3. REMICADE [Suspect]
     Route: 041
     Dates: start: 20031201
  4. PREDONINE [Suspect]
     Route: 049
  5. PREDONINE [Suspect]
     Route: 049
  6. PREDONINE [Suspect]
     Route: 049
  7. PREDONINE [Suspect]
     Route: 049
  8. PREDONINE [Suspect]
     Indication: CROHN'S DISEASE
     Route: 049
  9. LEUKERIN [Suspect]
     Indication: CROHN'S DISEASE
     Route: 049
  10. SALAZOPYRIN [Concomitant]
     Route: 049
  11. GASTER [Concomitant]
     Route: 049
  12. SELBEX [Concomitant]
     Route: 049
  13. MIYA-BM [Concomitant]
     Indication: PROPHYLAXIS
     Route: 049
  14. ALFAROL [Concomitant]
     Route: 049

REACTIONS (5)
  - BLISTER [None]
  - DEPRESSED LEVEL OF CONSCIOUSNESS [None]
  - DRUG INTERACTION [None]
  - HERPES ZOSTER [None]
  - VARICELLA [None]
